FAERS Safety Report 12949663 (Version 1)
Quarter: 2016Q4

REPORT INFORMATION
  Report Type: Spontaneous
  Country: None (occurrence: FI)
  Receive Date: 20161116
  Receipt Date: 20161116
  Transmission Date: 20170207
  Serious: Yes (Other)
  Sender: FDA-Public Use
  Company Number: FI-POPULATION COUNCIL, INC.-1059621

PATIENT
  Age: 41 Year
  Sex: Female

DRUGS (1)
  1. JADELLE [Suspect]
     Active Substance: LEVONORGESTREL
     Indication: CONTRACEPTION
     Route: 059
     Dates: start: 20111214, end: 20161114

REACTIONS (2)
  - Device difficult to use [None]
  - Device dislocation [None]

NARRATIVE: CASE EVENT DATE: 20161114
